FAERS Safety Report 12649162 (Version 3)
Quarter: 2017Q1

REPORT INFORMATION
  Report Type: Report from Study
  Country: AU (occurrence: AU)
  Receive Date: 20160812
  Receipt Date: 20170117
  Transmission Date: 20170428
  Serious: Yes (Hospitalization)
  Sender: FDA-Public Use
  Company Number: AU-ROCHE-1808429

PATIENT
  Age: 67 Year
  Sex: Male
  Weight: 86 kg

DRUGS (6)
  1. XALATAN [Concomitant]
     Active Substance: LATANOPROST
     Indication: GLAUCOMA
  2. CARBOPLATIN. [Suspect]
     Active Substance: CARBOPLATIN
     Indication: NON-SMALL CELL LUNG CANCER
     Dosage: DATE OF MOST RECENT DOSE PRIOR TO THE EVENT ONSET: 15/JUL/2016
     Route: 042
     Dates: start: 20160715
  3. AMOXYCILLIN [Concomitant]
     Active Substance: AMOXICILLIN
     Route: 065
     Dates: start: 20160715
  4. ATEZOLIZUMAB [Suspect]
     Active Substance: ATEZOLIZUMAB
     Indication: NON-SMALL CELL LUNG CANCER
     Dosage: DATE OF MOST RECENT DOSE PRIOR TO THE EVENT ONSET: 15/JUL/2016
     Route: 042
     Dates: start: 20160715
  5. PACLITAXEL. [Suspect]
     Active Substance: PACLITAXEL
     Indication: NON-SMALL CELL LUNG CANCER
     Dosage: DATE OF MOST RECENT DOSE PRIOR TO THE EVENT ONSET: 15/JUL/2016
     Route: 042
     Dates: start: 20160715
  6. PARACETAMOL [Concomitant]
     Active Substance: ACETAMINOPHEN
     Route: 065
     Dates: start: 20160715, end: 20160715

REACTIONS (2)
  - Pulmonary embolism [Not Recovered/Not Resolved]
  - Pneumonitis [Not Recovered/Not Resolved]

NARRATIVE: CASE EVENT DATE: 20160803
